FAERS Safety Report 7379057-4 (Version None)
Quarter: 2011Q1

REPORT INFORMATION
  Report Type: 
  Country: None (occurrence: None)
  Receive Date: 20110328
  Receipt Date: 20110322
  Transmission Date: 20110831
  Serious: No
  Sender: FDA-Public Use
  Company Number: US-ASTRAZENECA-2011SE16488

PATIENT
  Age: 48 Year
  Sex: Female

DRUGS (3)
  1. SEROQUEL [Suspect]
     Indication: ANXIETY
     Route: 048
     Dates: start: 20090401
  2. SEROQUEL [Suspect]
     Indication: SLEEP DISORDER
     Route: 048
     Dates: start: 20090401
  3. LORAZEPAM [Concomitant]

REACTIONS (4)
  - NO ADVERSE EVENT [None]
  - ANAEMIA [None]
  - UTERINE HAEMORRHAGE [None]
  - THERAPEUTIC RESPONSE UNEXPECTED [None]
